FAERS Safety Report 5875314-9 (Version None)
Quarter: 2008Q3

REPORT INFORMATION
  Report Type: 
  Country: None (occurrence: None)
  Receive Date: 20080909
  Receipt Date: 20080610
  Transmission Date: 20090109
  Serious: Yes (Hospitalization)
  Sender: FDA-Public Use
  Company Number: FR-MERCK-0801FRA00037

PATIENT
  Age: 45 Year
  Sex: Male

DRUGS (6)
  1. ISENTRESS [Suspect]
     Indication: HIV INFECTION
     Route: 048
     Dates: start: 20071022, end: 20071213
  2. DARUNAVIR [Suspect]
     Indication: HIV INFECTION
     Route: 048
     Dates: start: 20071022, end: 20071213
  3. RITONAVIR [Suspect]
     Indication: HIV INFECTION
     Route: 048
     Dates: start: 20071022, end: 20071213
  4. ENFUVIRTIDE [Suspect]
     Indication: HIV INFECTION
     Route: 058
     Dates: start: 20071022, end: 20071213
  5. TACROLIMUS [Suspect]
     Indication: LIVER TRANSPLANT
     Route: 048
     Dates: start: 20071001
  6. MYCOPHENOLATE MOFETIL [Concomitant]
     Route: 065

REACTIONS (8)
  - CD4 LYMPHOCYTES DECREASED [None]
  - CHOLESTASIS [None]
  - DRUG INEFFECTIVE [None]
  - HEPATIC NECROSIS [None]
  - HEPATITIS C [None]
  - HEPATOCELLULAR INJURY [None]
  - MYELOCYTOSIS [None]
  - RENAL FAILURE [None]
